FAERS Safety Report 9445012 (Version 3)
Quarter: 2014Q3

REPORT INFORMATION
  Report Type: Spontaneous
  Country: US (occurrence: US)
  Receive Date: 20130807
  Receipt Date: 20140825
  Transmission Date: 20150326
  Serious: Yes (Death, Other)
  Sender: FDA-Public Use
  Company Number: US-009507513-1308USA002380

PATIENT
  Sex: Female
  Weight: 113.38 kg

DRUGS (1)
  1. NUVARING [Suspect]
     Active Substance: ETHINYL ESTRADIOL\ETONOGESTREL
     Indication: CONTRACEPTION
     Dosage: 0.120MG-0.015 MG VAGINAL RING 1 EACH Q 4 WEEKS.
     Route: 067
     Dates: start: 2003, end: 20130727

REACTIONS (2)
  - Cholecystectomy [Unknown]
  - Pulmonary embolism [Fatal]

NARRATIVE: CASE EVENT DATE: 201306
